FAERS Safety Report 5860713-1 (Version None)
Quarter: 2008Q3

REPORT INFORMATION
  Report Type: 
  Country: None (occurrence: None)
  Receive Date: 20080826
  Receipt Date: 20080821
  Transmission Date: 20090109
  Serious: Yes (Other)
  Sender: FDA-Public Use
  Company Number: 2008SP017050

PATIENT

DRUGS (1)
  1. AFRIN [Suspect]
     Indication: SINUS DISORDER
     Dosage: QD;NAS
     Route: 045

REACTIONS (1)
  - DRUG DEPENDENCE [None]
